FAERS Safety Report 9345684 (Version 2)
Quarter: 2013Q3

REPORT INFORMATION
  Report Type: Spontaneous
  Country: NO (occurrence: NO)
  Receive Date: 20130613
  Receipt Date: 20130814
  Transmission Date: 20140515
  Serious: No
  Sender: FDA-Public Use
  Company Number: PHHY2013NO059325

PATIENT
  Age: 30 Year
  Sex: Male

DRUGS (1)
  1. RITALIN [Suspect]
     Indication: OFF LABEL USE
     Dosage: 30 MG, DAILY

REACTIONS (1)
  - Diplopia [Not Recovered/Not Resolved]
